FAERS Safety Report 19362849 (Version 1)
Quarter: 2021Q2

REPORT INFORMATION
  Report Type: Spontaneous
  Country: JP (occurrence: JP)
  Receive Date: 20210602
  Receipt Date: 20210602
  Transmission Date: 20210717
  Serious: Yes (Other)
  Sender: FDA-Public Use
  Company Number: JP-BAYER-2021-150428

PATIENT
  Age: 36 Year
  Sex: Female

DRUGS (1)
  1. MIRENA [Suspect]
     Active Substance: LEVONORGESTREL
     Indication: ADENOMYOSIS
     Dosage: 20 ?G PER DAY, CONTINUOUSLY
     Route: 015

REACTIONS (6)
  - Intermenstrual bleeding [None]
  - Off label use of device [None]
  - Platelet count decreased [None]
  - Immune thrombocytopenia [None]
  - Haemorrhagic diathesis [None]
  - Amenorrhoea [None]
